FAERS Safety Report 15769810 (Version 1)
Quarter: 2018Q4

REPORT INFORMATION
  Report Type: Spontaneous
  Country: US (occurrence: US)
  Receive Date: 20181227
  Receipt Date: 20181227
  Transmission Date: 20190205
  Serious: Yes (Other)
  Sender: FDA-Public Use
  Company Number: None

PATIENT
  Age: 61 Year
  Sex: Male
  Weight: 67.5 kg

DRUGS (3)
  1. MOXIFLOXACIN 400 MG [Suspect]
     Active Substance: MOXIFLOXACIN
     Indication: BACTERIAL INFECTION
     Dosage: ?          QUANTITY:1 TABLET(S);?
     Route: 048
     Dates: start: 20181207, end: 20181216
  2. ASPIRIN. [Concomitant]
     Active Substance: ASPIRIN
  3. PROTONIX [Concomitant]
     Active Substance: PANTOPRAZOLE SODIUM

REACTIONS (20)
  - Bedridden [None]
  - Insomnia [None]
  - Pain [None]
  - Weight decreased [None]
  - Cough [None]
  - Pulmonary pain [None]
  - Inflammation [None]
  - Seizure [None]
  - Headache [None]
  - Arthralgia [None]
  - Nausea [None]
  - Tendon pain [None]
  - Contusion [None]
  - Dyspnoea [None]
  - Asphyxia [None]
  - Stress [None]
  - Erythema [None]
  - Dysstasia [None]
  - Dizziness [None]
  - Fatigue [None]

NARRATIVE: CASE EVENT DATE: 20181215
